FAERS Safety Report 4295285-9 (Version None)
Quarter: 2004Q1

REPORT INFORMATION
  Report Type: 
  Country: None (occurrence: None)
  Receive Date: 20040216
  Receipt Date: 20030514
  Transmission Date: 20041129
  Serious: No
  Sender: FDA-Public Use
  Company Number: US-GLAXOSMITHKLINE-A0408411A

PATIENT
  Age: 4 Year
  Sex: Male

DRUGS (4)
  1. LAMICTAL [Suspect]
     Dosage: 100MG THREE TIMES PER DAY
     Route: 048
     Dates: start: 20010501
  2. TEGRETOL [Concomitant]
  3. PRILOSEC [Concomitant]
  4. DIAZEPAM [Concomitant]

REACTIONS (1)
  - IRRITABILITY [None]
